FAERS Safety Report 4602531-8 (Version None)
Quarter: 2005Q1

REPORT INFORMATION
  Report Type: 
  Country: None (occurrence: None)
  Receive Date: 20050309
  Receipt Date: 20050228
  Transmission Date: 20050727
  Serious: Yes (Other)
  Sender: FDA-Public Use
  Company Number: US-KINGPHARMUSA00001-K200500289

PATIENT
  Age: 81 Year
  Sex: Female

DRUGS (6)
  1. ALTACE [Suspect]
     Dosage: 5 MG, QD
     Route: 048
     Dates: end: 20040119
  2. CARDIZEM [Suspect]
     Indication: MYOCARDIAL ISCHAEMIA
     Dosage: 180 MG, QD
     Route: 048
     Dates: end: 20040119
  3. IMDUR [Suspect]
     Indication: MYOCARDIAL ISCHAEMIA
     Dosage: 60 MG, QD
     Route: 048
     Dates: end: 20040119
  4. ZOCOR [Suspect]
     Indication: MYOCARDIAL ISCHAEMIA
     Dosage: 80 MG, QD
     Route: 048
     Dates: end: 20040119
  5. KEFLEX [Concomitant]
     Indication: URINARY TRACT DISORDER
     Route: 048
  6. GLUCOPHAGE [Concomitant]
     Dosage: 1.7 G, UNK
     Route: 048
     Dates: start: 20031218

REACTIONS (7)
  - ABASIA [None]
  - BLOOD CREATINE PHOSPHOKINASE INCREASED [None]
  - DIFFICULTY IN WALKING [None]
  - LIVER DISORDER [None]
  - MUSCULAR WEAKNESS [None]
  - STAPHYLOCOCCAL INFECTION [None]
  - URINARY TRACT INFECTION [None]
